FAERS Safety Report 16623332 (Version 1)
Quarter: 2019Q3

REPORT INFORMATION
  Report Type: Report from Study
  Country: IT (occurrence: IT)
  Receive Date: 20190723
  Receipt Date: 20190723
  Transmission Date: 20191004
  Serious: Yes (Hospitalization)
  Sender: FDA-Public Use
  Company Number: IT-PFIZER INC-2019310342

PATIENT
  Age: 91 Year
  Sex: Male

DRUGS (9)
  1. CALCIPARINA [Concomitant]
     Active Substance: HEPARIN CALCIUM
     Dosage: UNK
     Dates: start: 20181230, end: 20190126
  2. KCL-RETARD [Concomitant]
     Active Substance: POTASSIUM CHLORIDE
  3. MEROPENEM HIKMA [Suspect]
     Active Substance: MEROPENEM
     Indication: PNEUMONIA
     Dosage: 1 DF, 1X/DAY
     Route: 042
     Dates: start: 20190107, end: 20190116
  4. PANTORC [Concomitant]
     Active Substance: PANTOPRAZOLE SODIUM
  5. BRONCOVALEAS [SALBUTAMOL] [Concomitant]
  6. LINEZOLID. [Suspect]
     Active Substance: LINEZOLID
     Indication: PNEUMONIA
     Dosage: 1 DF, 1X/DAY
     Route: 042
     Dates: start: 20190107, end: 20190116
  7. OMNIC [Concomitant]
     Active Substance: TAMSULOSIN HYDROCHLORIDE
  8. LEDERFOLIN [Concomitant]
     Active Substance: LEUCOVORIN CALCIUM
     Dosage: 7.5 UNK, UNK
  9. NORVASC [Concomitant]
     Active Substance: AMLODIPINE BESYLATE
     Dosage: UNK

REACTIONS (2)
  - Rash papular [Recovering/Resolving]
  - Rash generalised [Recovering/Resolving]

NARRATIVE: CASE EVENT DATE: 20190116
